FAERS Safety Report 5344554-X (Version None)
Quarter: 2007Q2

REPORT INFORMATION
  Report Type: 
  Country: None (occurrence: None)
  Receive Date: 20070604
  Receipt Date: 20070523
  Transmission Date: 20071010
  Serious: Yes (Other)
  Sender: FDA-Public Use
  Company Number: GB-PFIZER INC-2007042610

PATIENT
  Age: 49 Year
  Sex: Male

DRUGS (3)
  1. SILDENAFIL CITRATE [Suspect]
     Indication: ILL-DEFINED DISORDER
     Dosage: DAILY DOSE:50MG
     Route: 048
     Dates: start: 20070415, end: 20070508
  2. SYMBICORT [Concomitant]
     Route: 055
  3. VENTOLIN [Concomitant]
     Route: 055

REACTIONS (1)
  - DYSKINESIA [None]
